FAERS Safety Report 7551456-7 (Version None)
Quarter: 2011Q2

REPORT INFORMATION
  Report Type: 
  Country: None (occurrence: None)
  Receive Date: 20110609
  Receipt Date: 20110524
  Transmission Date: 20111010
  Serious: Yes (Hospitalization, Other)
  Sender: FDA-Public Use
  Company Number: 2011MA006369

PATIENT
  Age: 63 Year
  Sex: Male

DRUGS (3)
  1. LOVASTATIN [Suspect]
     Indication: HYPERCHOLESTEROLAEMIA
     Dosage: 40 MG;OD
  2. RAMIPRIL [Concomitant]
  3. AMIODARONE HCL [Concomitant]

REACTIONS (9)
  - ATRIAL FIBRILLATION [None]
  - MYOGLOBIN URINE PRESENT [None]
  - MYOGLOBIN BLOOD INCREASED [None]
  - CHROMATURIA [None]
  - PAIN [None]
  - ASTHENIA [None]
  - ASPARTATE AMINOTRANSFERASE INCREASED [None]
  - ALANINE AMINOTRANSFERASE INCREASED [None]
  - DRUG INTERACTION [None]
